FAERS Safety Report 7054300-X (Version None)
Quarter: 2010Q4

REPORT INFORMATION
  Report Type: 
  Country: None (occurrence: None)
  Receive Date: 20101020
  Receipt Date: 20101008
  Transmission Date: 20110411
  Serious: Yes (Other)
  Sender: FDA-Public Use
  Company Number: JP-PFIZER INC-2010121841

PATIENT
  Age: 61 Year
  Sex: Male
  Weight: 75 kg

DRUGS (3)
  1. LYRICA [Suspect]
     Indication: PAIN
     Dosage: 75 MG, 1X/DAY
     Route: 048
     Dates: start: 20100910, end: 20100915
  2. ADALAT CC [Concomitant]
     Indication: HYPERTENSION
     Dosage: 20 MG, 1X/DAY
     Route: 048
     Dates: start: 20100906, end: 20100909
  3. ADALAT CC [Concomitant]
     Dosage: 40 MG, 1X/DAY
     Route: 048
     Dates: start: 20100910

REACTIONS (4)
  - ANAEMIA [None]
  - ERYTHROPENIA [None]
  - GASTRITIS [None]
  - LEUKOPENIA [None]
